FAERS Safety Report 14848299 (Version 2)
Quarter: 2018Q2

REPORT INFORMATION
  Report Type: Spontaneous
  Country: US (occurrence: US)
  Receive Date: 20180504
  Receipt Date: 20180522
  Transmission Date: 20180711
  Serious: Yes (Hospitalization, Other)
  Sender: FDA-Public Use
  Company Number: US-JAZZ-2018-US-007133

PATIENT
  Age: 46 Year
  Sex: Male

DRUGS (2)
  1. TRAZODONE [Suspect]
     Active Substance: TRAZODONE HYDROCHLORIDE
     Indication: PRODUCT USED FOR UNKNOWN INDICATION
  2. XYREM [Suspect]
     Active Substance: SODIUM OXYBATE
     Indication: PRODUCT USED FOR UNKNOWN INDICATION
     Dosage: 4.5 G, BID
     Route: 048

REACTIONS (14)
  - Proteinuria [Unknown]
  - pH urine increased [Unknown]
  - Suicide attempt [Unknown]
  - Confusional state [Recovered/Resolved]
  - Priapism [Unknown]
  - Vomiting [Unknown]
  - Insomnia [Unknown]
  - Agitation [Unknown]
  - Product preparation error [Unknown]
  - Overdose [Unknown]
  - Bipolar disorder [Unknown]
  - Anxiety [Unknown]
  - Mental status changes [Unknown]
  - Urinary retention [Unknown]

NARRATIVE: CASE EVENT DATE: 20180419
